FAERS Safety Report 6611626-9 (Version None)
Quarter: 2010Q1

REPORT INFORMATION
  Report Type: 
  Country: None (occurrence: None)
  Receive Date: 20100303
  Receipt Date: 20100226
  Transmission Date: 20100710
  Serious: Yes (Death, Life-Threatening)
  Sender: FDA-Public Use
  Company Number: CN-SANOFI-AVENTIS-2010SA011105

PATIENT
  Age: 65 Year
  Sex: Male
  Weight: 56 kg

DRUGS (1)
  1. ENOXAPARIN SODIUM [Suspect]
     Route: 058
     Dates: start: 20100224, end: 20100224

REACTIONS (1)
  - CARDIOPULMONARY FAILURE [None]
